FAERS Safety Report 17027788 (Version 1)
Quarter: 2019Q4

REPORT INFORMATION
  Report Type: Spontaneous
  Country: GB (occurrence: GB)
  Receive Date: 20191113
  Receipt Date: 20191113
  Transmission Date: 20200122
  Serious: Yes (Other)
  Sender: FDA-Public Use
  Company Number: GB-BAYER-2019-199347

PATIENT
  Age: 28 Year
  Sex: Female
  Weight: 54 kg

DRUGS (1)
  1. YASMIN [Suspect]
     Active Substance: DROSPIRENONE\ETHINYL ESTRADIOL
     Indication: CONTRACEPTION
     Dosage: 1 DF, QD
     Route: 048
     Dates: start: 20180625, end: 20180702

REACTIONS (8)
  - Depressed mood [Unknown]
  - Anxiety [Unknown]
  - Chest discomfort [Unknown]
  - Crying [Unknown]
  - Depression [Unknown]
  - Mood swings [Unknown]
  - Feelings of worthlessness [Unknown]
  - Panic attack [Unknown]

NARRATIVE: CASE EVENT DATE: 201807
